FAERS Safety Report 13771595 (Version 2)
Quarter: 2017Q3

REPORT INFORMATION
  Report Type: Spontaneous
  Country: US (occurrence: US)
  Receive Date: 20170720
  Receipt Date: 20170825
  Transmission Date: 20171127
  Serious: No
  Sender: FDA-Public Use
  Company Number: US-PFIZER INC-2017307406

PATIENT
  Age: 64 Year
  Sex: Female
  Weight: 60 kg

DRUGS (4)
  1. METOPROLOL. [Concomitant]
     Active Substance: METOPROLOL
     Indication: CARDIAC DISORDER
     Dosage: 25 MG TABLET, 1/2 TABLET TWICE A DAY
     Dates: start: 201510
  2. NP THYROID [Concomitant]
     Active Substance: LEVOTHYROXINE\LIOTHYRONINE
     Indication: HYPOTHYROIDISM
     Dosage: 90 MG, 1X/DAY
  3. ARMOUR THYROID [Concomitant]
     Active Substance: THYROID, PORCINE
     Indication: HYPOTHYROIDISM
     Dosage: UNK
  4. LIPITOR [Suspect]
     Active Substance: ATORVASTATIN CALCIUM
     Indication: BLOOD CHOLESTEROL
     Dosage: 20 MG, 1X/DAY(AT NIGHT)
     Route: 048

REACTIONS (7)
  - Pain of skin [Not Recovered/Not Resolved]
  - Pain [Unknown]
  - Hypoaesthesia [Not Recovered/Not Resolved]
  - Vitamin D decreased [Unknown]
  - Cervical radiculopathy [Not Recovered/Not Resolved]
  - Muscle disorder [Not Recovered/Not Resolved]
  - Myalgia [Not Recovered/Not Resolved]

NARRATIVE: CASE EVENT DATE: 2013
